FAERS Safety Report 12560993 (Version 1)
Quarter: 2016Q3

REPORT INFORMATION
  Report Type: Spontaneous
  Country: US (occurrence: US)
  Receive Date: 20160715
  Receipt Date: 20160715
  Transmission Date: 20161109
  Serious: No
  Sender: FDA-Public Use
  Company Number: US-WATSON-2016-11030

PATIENT
  Age: 85 Year
  Sex: Female

DRUGS (1)
  1. TELMISARTAN (WATSON LABORATORIES) [Suspect]
     Active Substance: TELMISARTAN
     Indication: HYPERTENSION
     Dosage: 20 MG, DAILY
     Route: 048

REACTIONS (1)
  - Back pain [Not Recovered/Not Resolved]
